FAERS Safety Report 24332706 (Version 1)
Quarter: 2024Q3

REPORT INFORMATION
  Report Type: Spontaneous
  Country: AT (occurrence: AT)
  Receive Date: 20240918
  Receipt Date: 20240918
  Transmission Date: 20241017
  Serious: Yes (Death, Other)
  Sender: CELLTRION
  Company Number: AT-Accord-355557

PATIENT

DRUGS (4)
  1. TRASTUZUMAB [Suspect]
     Active Substance: TRASTUZUMAB
     Indication: Product used for unknown indication
     Dosage: UNK
     Dates: start: 202006
  2. FLUOROURACIL [Suspect]
     Active Substance: FLUOROURACIL
     Indication: Product used for unknown indication
     Dosage: ADDITIONAL INFORMATION ON DRUG (FREE TEXT): FOLFOX
     Dates: start: 202002
  3. LEUCOVORIN [Concomitant]
     Active Substance: LEUCOVORIN\LEUCOVORIN CALCIUM
     Dosage: ADDITIONAL INFORMATION ON DRUG (FREE TEXT): FOLFOX
     Dates: start: 202002
  4. OXALIPLATIN [Concomitant]
     Active Substance: OXALIPLATIN
     Dosage: ADDITIONAL INFORMATION ON DRUG (FREE TEXT): FOLFOX
     Dates: start: 202002

REACTIONS (3)
  - Hepatorenal syndrome [Fatal]
  - Hepatic failure [Fatal]
  - Polyneuropathy [Recovered/Resolved]

NARRATIVE: CASE EVENT DATE: 20200101
